FAERS Safety Report 8920427 (Version 1)
Quarter: 2012Q4

REPORT INFORMATION
  Report Type: 
  Country: FR (occurrence: FR)
  Receive Date: 20121121
  Receipt Date: 20121121
  Transmission Date: 20130627
  Serious: Yes (Hospitalization)
  Sender: FDA-Public Use
  Company Number: FR-ROCHE-1157957

PATIENT
  Age: 57 Year
  Sex: Male
  Weight: 87 kg

DRUGS (4)
  1. ZELBORAF [Suspect]
     Indication: MALIGNANT MELANOMA
     Route: 048
     Dates: start: 20110618
  2. DETICENE [Suspect]
     Indication: MALIGNANT MELANOMA
     Route: 065
  3. LEVOTHYROX [Concomitant]
     Indication: METASTATIC MALIGNANT MELANOMA
     Route: 048
  4. STILNOX [Concomitant]
     Dosage: 1 tablet
     Route: 048

REACTIONS (1)
  - Pseudolymphoma [Recovered/Resolved]
